FAERS Safety Report 15783947 (Version 1)
Quarter: 2019Q1

REPORT INFORMATION
  Report Type: Report from Study
  Country: None (occurrence: US)
  Receive Date: 20190102
  Receipt Date: 20190102
  Transmission Date: 20190417
  Serious: Yes (Other)
  Sender: FDA-Public Use
  Company Number: US-ABBVIE-18S-163-2605810-00

PATIENT
  Age: 68 Year
  Sex: Male

DRUGS (1)
  1. CREON [Suspect]
     Active Substance: PANCRELIPASE AMYLASE\PANCRELIPASE LIPASE\PANCRELIPASE PROTEASE
     Indication: PRODUCT USED FOR UNKNOWN INDICATION
     Route: 048

REACTIONS (10)
  - Embolism venous [Unknown]
  - Diarrhoea [Unknown]
  - Steatorrhoea [Unknown]
  - Factor V Leiden mutation [Unknown]
  - Hyperlipidaemia [Unknown]
  - Diarrhoea [Unknown]
  - Arteriosclerosis coronary artery [Unknown]
  - Grief reaction [Unknown]
  - Hypertension [Unknown]
  - Abdominal pain lower [Unknown]

NARRATIVE: CASE EVENT DATE: 20110422
